FAERS Safety Report 9782872 (Version 2)
Quarter: 2013Q4

REPORT INFORMATION
  Report Type: Spontaneous
  Country: US (occurrence: US)
  Receive Date: 20131226
  Receipt Date: 20131226
  Transmission Date: 20140711
  Serious: Yes (Other)
  Sender: FDA-Public Use
  Company Number: US-ABBVIE-13P-163-1058781-00

PATIENT
  Age: 78 Year
  Sex: Male
  Weight: 79.45 kg

DRUGS (1)
  1. LUPRON DEPOT [Suspect]
     Indication: PROSTATE CANCER
     Dates: start: 20130227, end: 20130227

REACTIONS (3)
  - Anaphylactic shock [Unknown]
  - Hypotension [Unknown]
  - Urticaria [Unknown]
